FAERS Safety Report 12912511 (Version 1)
Quarter: 2016Q4

REPORT INFORMATION
  Report Type: Spontaneous
  Country: ES (occurrence: ES)
  Receive Date: 20161104
  Receipt Date: 20161104
  Transmission Date: 20170207
  Serious: Yes (Hospitalization)
  Sender: FDA-Public Use
  Company Number: ES-SA-2016SA198246

PATIENT
  Age: 47 Year
  Sex: Female
  Weight: 55 kg

DRUGS (5)
  1. IRINOTECAN [Suspect]
     Active Substance: IRINOTECAN
     Indication: ADENOCARCINOMA OF COLON
     Dosage: 144 MG/M2?FREQUENCY: 1 EVERY 2 MONTHS
     Route: 042
     Dates: start: 20151217, end: 20151217
  2. FLUOROURACILO [Suspect]
     Active Substance: FLUOROURACIL
     Indication: ADENOCARCINOMA OF COLON
     Dosage: 1920 MG/M2?FREQUENCY: 1 EVERY 2 MONTHS
     Route: 042
     Dates: start: 20151217, end: 20151217
  3. FOLINATO DE CALCIO [Concomitant]
     Dosage: 320 MG/M2?1 EVERY 2 MONTHS
     Route: 042
     Dates: start: 201605, end: 201605
  4. FOLINATO DE CALCIO [Concomitant]
     Dosage: 320 MG/M2?1 EVERY 2 MONTHS
     Route: 042
     Dates: start: 20151217, end: 20151217
  5. ZALTRAP [Suspect]
     Active Substance: ZIV-AFLIBERCEPT
     Indication: ADENOCARCINOMA OF COLON
     Dosage: 2 MG/KG?FREQUENCY: 1 EVERY 2 MONTHS
     Route: 042
     Dates: start: 20151217, end: 20151217

REACTIONS (2)
  - Vomiting [Recovered/Resolved]
  - Enterocolitis [Recovered/Resolved]

NARRATIVE: CASE EVENT DATE: 20160105
